FAERS Safety Report 5704478-2 (Version None)
Quarter: 2008Q2

REPORT INFORMATION
  Report Type: 
  Country: None (occurrence: None)
  Receive Date: 20080411
  Receipt Date: 20080411
  Transmission Date: 20081010
  Serious: Yes (Other)
  Sender: FDA-Public Use
  Company Number: None

PATIENT
  Sex: Female
  Weight: 90.7194 kg

DRUGS (2)
  1. RELAFEN [Suspect]
     Indication: BACK PAIN
     Dosage: 2 500MG TABLETS 1X DAY 2/DINNER PO
     Route: 048
     Dates: start: 20080321, end: 20080409
  2. CHLORPHENIRAMINE MALEATE [Suspect]
     Indication: MIDDLE EAR EFFUSION
     Dosage: METHSCOPOLAMINE NITRATE 2.5MG  WHITE AM / BLUE PM  PO
     Route: 048
     Dates: start: 20080403, end: 20080409

REACTIONS (4)
  - ORAL MUCOSAL ERUPTION [None]
  - PRURITUS [None]
  - RASH ERYTHEMATOUS [None]
  - RASH PUSTULAR [None]
